FAERS Safety Report 4657560-5 (Version None)
Quarter: 2005Q2

REPORT INFORMATION
  Report Type: 
  Country: None (occurrence: None)
  Receive Date: 20050405
  Receipt Date: 20050131
  Transmission Date: 20051028
  Serious: Yes (Hospitalization, Other)
  Sender: FDA-Public Use
  Company Number: 2004110965

PATIENT
  Age: 56 Year
  Sex: Male

DRUGS (5)
  1. GEODON [Suspect]
     Indication: BIPOLAR DISORDER
     Dosage: 80 MG (40 MG,BID INTERVAL: EVERY DAY),ORAL
     Route: 048
     Dates: start: 20040701, end: 20040101
  2. LITHIUM CARBONATE [Concomitant]
  3. ANTIDEPRESSANTS (ANTIDEPRESSANTS) [Concomitant]
  4. ATORVASTATIN CALCIUM [Concomitant]
  5. ESCITALOPRAM OXALATE [Concomitant]

REACTIONS (4)
  - ANXIETY [None]
  - DEPRESSION [None]
  - EXTRAPYRAMIDAL DISORDER [None]
  - TARDIVE DYSKINESIA [None]
